FAERS Safety Report 7939132-X (Version None)
Quarter: 2011Q4

REPORT INFORMATION
  Report Type: 
  Country: None (occurrence: None)
  Receive Date: 20111124
  Receipt Date: 20111116
  Transmission Date: 20120403
  Serious: Yes (Other)
  Sender: FDA-Public Use
  Company Number: JP-ROCHE-1014920

PATIENT
  Sex: Male

DRUGS (11)
  1. LOXONIN [Concomitant]
     Route: 061
  2. ALLOPURINOL [Concomitant]
     Route: 048
  3. CANDESARTAN CILEXETIL [Concomitant]
     Indication: HYPERTENSION
     Route: 048
  4. ASPIRIN [Concomitant]
     Route: 048
  5. LIPITOR [Concomitant]
     Indication: HYPERTENSION
     Route: 048
  6. SODIUM BICARBONATE [Concomitant]
     Route: 048
  7. BASEN [Concomitant]
     Indication: DIABETES MELLITUS
     Route: 048
  8. NORVASC [Concomitant]
     Indication: HYPERTENSION
     Route: 048
  9. ARGAMATE [Concomitant]
     Route: 048
  10. ISOSORBIDE MONONITRATE [Concomitant]
     Indication: HYPERTENSION
     Route: 048
  11. ACTEMRA [Suspect]
     Indication: PRODUCT USED FOR UNKNOWN INDICATION
     Dosage: DOSAGE IS UNCERTAIN.
     Route: 041

REACTIONS (1)
  - RENAL IMPAIRMENT [None]
